FAERS Safety Report 12520231 (Version 1)
Quarter: 2016Q2

REPORT INFORMATION
  Report Type: Spontaneous
  Country: US (occurrence: US)
  Receive Date: 20160630
  Receipt Date: 20160630
  Transmission Date: 20160815
  Serious: Yes (Other)
  Sender: FDA-Public Use
  Company Number: US-GLAXOSMITHKLINE-US2016GSK091501

PATIENT
  Age: 47 Year
  Sex: Female

DRUGS (1)
  1. TANZEUM [Suspect]
     Active Substance: ALBIGLUTIDE

REACTIONS (11)
  - Diabetes mellitus inadequate control [Unknown]
  - Memory impairment [Unknown]
  - Blood pressure abnormal [Unknown]
  - Fatigue [Unknown]
  - Vision blurred [Unknown]
  - Emergency care examination [Unknown]
  - Blood glucose fluctuation [Unknown]
  - Blood glucose abnormal [Unknown]
  - Surgery [Unknown]
  - Blood glucose decreased [Unknown]
  - Tooth disorder [Unknown]

NARRATIVE: CASE EVENT DATE: 201511
